FAERS Safety Report 7815794-2 (Version None)
Quarter: 2011Q4

REPORT INFORMATION
  Report Type: 
  Country: None (occurrence: None)
  Receive Date: 20111014
  Receipt Date: 20111010
  Transmission Date: 20120403
  Serious: Yes (Hospitalization, Other)
  Sender: FDA-Public Use
  Company Number: ZA-SANOFI-AVENTIS-2011SA050026

PATIENT
  Age: 29 Year
  Sex: Female

DRUGS (5)
  1. LANTUS [Suspect]
     Route: 058
     Dates: start: 20110723
  2. HUMAN PROTAPHANE [Concomitant]
     Route: 058
  3. APIDRA [Suspect]
     Dosage: 3-5 U TDS
     Dates: start: 20110729
  4. LOVAZA [Concomitant]
  5. FLUOXETINE [Concomitant]

REACTIONS (2)
  - BLINDNESS UNILATERAL [None]
  - BLOOD GLUCOSE DECREASED [None]
